FAERS Safety Report 25467155 (Version 1)
Quarter: 2025Q2

REPORT INFORMATION
  Report Type: Spontaneous
  Country: GB (occurrence: GB)
  Receive Date: 20250623
  Receipt Date: 20250623
  Transmission Date: 20250717
  Serious: Yes (Hospitalization, Disabling, Other)
  Sender: ALEXION PHARMACEUTICALS
  Company Number: GB-GSKCHJ-GB2018GSK240862AA

PATIENT
  Age: 86 Year
  Weight: 91 kg

DRUGS (333)
  1. NEXIUM [Suspect]
     Active Substance: ESOMEPRAZOLE MAGNESIUM
     Indication: Reflux laryngitis
     Route: 065
  2. ASTRAZENECA COVID-19 VACCINE [Suspect]
     Active Substance: AZD-1222
     Route: 065
  3. ASTRAZENECA COVID-19 VACCINE [Suspect]
     Active Substance: AZD-1222
     Route: 065
  4. CANDESARTAN CILEXETIL [Suspect]
     Active Substance: CANDESARTAN CILEXETIL
  5. CANDESARTAN CILEXETIL [Suspect]
     Active Substance: CANDESARTAN CILEXETIL
     Dosage: 2 MG, QD
  6. CANDESARTAN CILEXETIL [Suspect]
     Active Substance: CANDESARTAN CILEXETIL
  7. CANDESARTAN CILEXETIL [Suspect]
     Active Substance: CANDESARTAN CILEXETIL
     Route: 065
  8. CANDESARTAN CILEXETIL [Suspect]
     Active Substance: CANDESARTAN CILEXETIL
     Dosage: 2 MG, QD
  9. CANDESARTAN CILEXETIL [Suspect]
     Active Substance: CANDESARTAN CILEXETIL
     Route: 065
  10. CANDESARTAN CILEXETIL [Suspect]
     Active Substance: CANDESARTAN CILEXETIL
  11. CANDESARTAN CILEXETIL [Suspect]
     Active Substance: CANDESARTAN CILEXETIL
     Dosage: 2 MG, QD, ROUTE: UNKNOWN
     Route: 065
  12. CANDESARTAN CILEXETIL [Suspect]
     Active Substance: CANDESARTAN CILEXETIL
  13. CANDESARTAN CILEXETIL [Suspect]
     Active Substance: CANDESARTAN CILEXETIL
     Dosage: 2 MG, QD (MORNING)
  14. CANDESARTAN CILEXETIL [Suspect]
     Active Substance: CANDESARTAN CILEXETIL
     Dosage: 2 MG, QD (MORNING)
  15. CANDESARTAN CILEXETIL [Suspect]
     Active Substance: CANDESARTAN CILEXETIL
     Dosage: 2 MG, QD MORNING, ROUTE: UNKNOWN
     Route: 065
  16. CANDESARTAN CILEXETIL [Suspect]
     Active Substance: CANDESARTAN CILEXETIL
  17. CANDESARTAN CILEXETIL [Suspect]
     Active Substance: CANDESARTAN CILEXETIL
  18. CANDESARTAN CILEXETIL [Suspect]
     Active Substance: CANDESARTAN CILEXETIL
     Dosage: 10 MG, QD
  19. CANDESARTAN CILEXETIL [Suspect]
     Active Substance: CANDESARTAN CILEXETIL
     Dosage: 1 DF, QD, MORNING, INGREDIENT CETRIZINE 10 MGHYDROCHLOROTHIADIDE 2MG
  20. CANDESARTAN CILEXETIL [Suspect]
     Active Substance: CANDESARTAN CILEXETIL
     Dosage: 2 MG, QD, ONCE DAILY (QD) (MORNING)
  21. CANDESARTAN CILEXETIL [Suspect]
     Active Substance: CANDESARTAN CILEXETIL
     Dosage: 2 MG, QD (MORNING) ADDITIONAL INFO: MISUSE, OFF LABEL
  22. CANDESARTAN CILEXETIL [Suspect]
     Active Substance: CANDESARTAN CILEXETIL
     Dosage: 2 MG, QD
  23. CANDESARTAN CILEXETIL [Suspect]
     Active Substance: CANDESARTAN CILEXETIL
     Dosage: 10 MG, QD
  24. CANDESARTAN CILEXETIL [Suspect]
     Active Substance: CANDESARTAN CILEXETIL
     Dosage: 2MG, QD ORAL USE
  25. CANDESARTAN CILEXETIL [Suspect]
     Active Substance: CANDESARTAN CILEXETIL
     Dosage: 2 MG, QD MORNING
  26. CANDESARTAN CILEXETIL [Suspect]
     Active Substance: CANDESARTAN CILEXETIL
  27. DAPAGLIFLOZIN [Suspect]
     Active Substance: DAPAGLIFLOZIN
  28. SIMVASTATIN [Suspect]
     Active Substance: SIMVASTATIN
     Indication: Product used for unknown indication
     Dosage: 40 MG, QD, ROUTE: UNKNOWN
     Route: 065
  29. SIMVASTATIN [Suspect]
     Active Substance: SIMVASTATIN
     Route: 065
  30. SIMVASTATIN [Suspect]
     Active Substance: SIMVASTATIN
     Dosage: 40 MG, QD (NIGHT), ROUTE: UNKNOWN
     Route: 065
  31. SIMVASTATIN [Suspect]
     Active Substance: SIMVASTATIN
     Dosage: UNK, ROUTE: UNKNOWN
     Route: 065
  32. SIMVASTATIN [Suspect]
     Active Substance: SIMVASTATIN
     Dosage: 40 MG AT NIGHT
     Route: 065
  33. SIMVASTATIN [Suspect]
     Active Substance: SIMVASTATIN
     Route: 065
  34. SIMVASTATIN [Suspect]
     Active Substance: SIMVASTATIN
     Dosage: 40 MG, QD
  35. SIMVASTATIN [Suspect]
     Active Substance: SIMVASTATIN
     Dosage: 40 MG, QD
     Route: 065
  36. SIMVASTATIN [Suspect]
     Active Substance: SIMVASTATIN
     Dosage: 40 MG, QD
     Route: 065
  37. SIMVASTATIN [Suspect]
     Active Substance: SIMVASTATIN
     Dosage: 40 MG, QD
     Route: 065
  38. SIMVASTATIN [Suspect]
     Active Substance: SIMVASTATIN
     Dosage: 40 MG, QD (NIGHT)
  39. SIMVASTATIN [Suspect]
     Active Substance: SIMVASTATIN
     Dosage: 40 MG, QD (NIGHT)
  40. SIMVASTATIN [Suspect]
     Active Substance: SIMVASTATIN
     Route: 065
  41. LEVOTHYROXINE [Suspect]
     Active Substance: LEVOTHYROXINE
     Indication: Product used for unknown indication
     Dosage: 12 UG DAILY
  42. LEVOTHYROXINE [Suspect]
     Active Substance: LEVOTHYROXINE
     Dosage: 12 ?G, QD
  43. LEVOTHYROXINE [Suspect]
     Active Substance: LEVOTHYROXINE
     Dosage: 50  MG DAILY
     Route: 065
  44. LEVOTHYROXINE [Suspect]
     Active Substance: LEVOTHYROXINE
     Route: 065
  45. LEVOTHYROXINE [Suspect]
     Active Substance: LEVOTHYROXINE
     Dosage: 10 MG, QD (10 MILLIGRAM, QD; 5MG, QD)
     Route: 065
  46. LEVOTHYROXINE [Suspect]
     Active Substance: LEVOTHYROXINE
     Dosage: 1 DF - 50G, ONCE DAILY (QD)
     Route: 065
  47. LEVOTHYROXINE [Suspect]
     Active Substance: LEVOTHYROXINE
     Route: 065
  48. LEVOTHYROXINE [Suspect]
     Active Substance: LEVOTHYROXINE
     Dosage: 50 MICROGRAM, ONCE A DAY (MORNING)
     Route: 065
  49. LEVOTHYROXINE [Suspect]
     Active Substance: LEVOTHYROXINE
     Dosage: 1 DF, QD (50G, ONCE DAILY)
  50. LEVOTHYROXINE [Suspect]
     Active Substance: LEVOTHYROXINE
     Route: 065
  51. LEVOTHYROXINE [Suspect]
     Active Substance: LEVOTHYROXINE
     Dosage: 30 MG, QD, ROUTE: UNKNOWN
     Route: 065
  52. LEVOTHYROXINE [Suspect]
     Active Substance: LEVOTHYROXINE
     Route: 065
  53. LEVOTHYROXINE [Suspect]
     Active Substance: LEVOTHYROXINE
     Dosage: 50 ?G, QD
  54. LEVOTHYROXINE [Suspect]
     Active Substance: LEVOTHYROXINE
     Route: 065
  55. LEVOTHYROXINE [Suspect]
     Active Substance: LEVOTHYROXINE
     Dosage: 50 ?G, QD (MORNING), ROUTE: UNKNOWN
     Route: 065
  56. LEVOTHYROXINE [Suspect]
     Active Substance: LEVOTHYROXINE
     Route: 065
  57. LEVOTHYROXINE [Suspect]
     Active Substance: LEVOTHYROXINE
     Route: 065
  58. LEVOTHYROXINE [Suspect]
     Active Substance: LEVOTHYROXINE
     Route: 065
  59. LEVOTHYROXINE [Suspect]
     Active Substance: LEVOTHYROXINE
     Dosage: 50 ?G, QD
  60. LEVOTHYROXINE [Suspect]
     Active Substance: LEVOTHYROXINE
     Route: 065
  61. LEVOTHYROXINE [Suspect]
     Active Substance: LEVOTHYROXINE
     Dosage: 10 MG, QD, ROUTE: UNKNOWN
     Route: 065
  62. LEVOTHYROXINE [Suspect]
     Active Substance: LEVOTHYROXINE
     Route: 065
  63. LEVOTHYROXINE [Suspect]
     Active Substance: LEVOTHYROXINE
     Dosage: 125 UG, QD
  64. LEVOTHYROXINE [Suspect]
     Active Substance: LEVOTHYROXINE
     Dosage: 10 MG, QD, ROUTE: UNKNOWN
     Route: 065
  65. LEVOTHYROXINE [Suspect]
     Active Substance: LEVOTHYROXINE
     Route: 065
  66. LEVOTHYROXINE [Suspect]
     Active Substance: LEVOTHYROXINE
     Dosage: 125 ?G, QD (MORNING), ROUTE: UNKNOWN
     Route: 065
  67. LEVOTHYROXINE [Suspect]
     Active Substance: LEVOTHYROXINE
     Dosage: 50 MG, QD, ROUTE: UNKNOWN
     Route: 065
  68. LEVOTHYROXINE [Suspect]
     Active Substance: LEVOTHYROXINE
     Dosage: 50 ?G, QD, ROUTE: UNKNOWN
     Route: 065
  69. LEVOTHYROXINE [Suspect]
     Active Substance: LEVOTHYROXINE
     Dosage: 30 MG, QD, ROUTE: UNKNOWN
     Route: 065
  70. LEVOTHYROXINE [Suspect]
     Active Substance: LEVOTHYROXINE
     Dosage: 30 UG, QD MORNING, ROUTE: UNKNOWN
     Route: 065
  71. LEVOTHYROXINE [Suspect]
     Active Substance: LEVOTHYROXINE
     Dosage: 125 G, QD, ROUTE: UNKNOWN
  72. LEVOTHYROXINE [Suspect]
     Active Substance: LEVOTHYROXINE
     Route: 065
  73. LEVOTHYROXINE [Suspect]
     Active Substance: LEVOTHYROXINE
     Route: 065
  74. LEVOTHYROXINE [Suspect]
     Active Substance: LEVOTHYROXINE
     Route: 065
  75. LEVOTHYROXINE [Suspect]
     Active Substance: LEVOTHYROXINE
     Route: 065
  76. LEVOTHYROXINE [Suspect]
     Active Substance: LEVOTHYROXINE
     Route: 065
  77. LEVOTHYROXINE [Suspect]
     Active Substance: LEVOTHYROXINE
     Route: 065
  78. ELIQUIS [Suspect]
     Active Substance: APIXABAN
     Indication: Cerebrovascular accident prophylaxis
  79. ELIQUIS [Suspect]
     Active Substance: APIXABAN
     Indication: Product used for unknown indication
     Dosage: 5 MG, QD
     Route: 065
  80. ELIQUIS [Suspect]
     Active Substance: APIXABAN
     Indication: Atrial fibrillation
     Dosage: 10 MG, QD (DOSAGE FORM: UNSPECIFIED, OFF LABEL DOSING)
  81. ELIQUIS [Suspect]
     Active Substance: APIXABAN
     Dosage: 5 MG, QD, ROUTE: UNKNOWN
     Route: 065
  82. ELIQUIS [Suspect]
     Active Substance: APIXABAN
     Dosage: 5 MG, QD
  83. ELIQUIS [Suspect]
     Active Substance: APIXABAN
     Dosage: 10 MG, QD, ROUTE: UNKNOWN
     Route: 065
  84. ELIQUIS [Suspect]
     Active Substance: APIXABAN
     Dosage: 10 MG, QD
  85. ELIQUIS [Suspect]
     Active Substance: APIXABAN
     Dosage: 5 MG, QD, ROUTE: UNKNOWN
     Route: 065
  86. ELIQUIS [Suspect]
     Active Substance: APIXABAN
     Dosage: 10 MG, QD, ROUTE: UNKNOWN
     Route: 065
  87. ELIQUIS [Suspect]
     Active Substance: APIXABAN
     Dosage: 5 MG, QD
  88. ELIQUIS [Suspect]
     Active Substance: APIXABAN
     Route: 065
  89. DIGOXIN [Suspect]
     Active Substance: DIGOXIN
     Indication: Cerebrovascular accident prophylaxis
     Dosage: 1 UG DAILY
  90. DIGOXIN [Suspect]
     Active Substance: DIGOXIN
     Dosage: 62.5 UG, QD
     Route: 065
  91. DIGOXIN [Suspect]
     Active Substance: DIGOXIN
     Dosage: 4 UG, QD
  92. DIGOXIN [Suspect]
     Active Substance: DIGOXIN
     Dosage: 62.5 UG, QD ONCE DAILY (MORNING), DOSE: UNKNOWN, ROUTE: UNKNOWN
     Route: 065
  93. DIGOXIN [Suspect]
     Active Substance: DIGOXIN
     Dosage: 1 UG, QD
     Route: 065
  94. DIGOXIN [Suspect]
     Active Substance: DIGOXIN
  95. DIGOXIN [Suspect]
     Active Substance: DIGOXIN
     Dosage: 63 ?G, QD
     Route: 065
  96. DIGOXIN [Suspect]
     Active Substance: DIGOXIN
     Route: 065
  97. DIGOXIN [Suspect]
     Active Substance: DIGOXIN
     Route: 065
  98. DIGOXIN [Suspect]
     Active Substance: DIGOXIN
     Route: 065
  99. DIGOXIN [Suspect]
     Active Substance: DIGOXIN
     Dosage: 62.5 UG, QD (MORNING), ROUTE: UNKNOWN
     Route: 065
  100. DIGOXIN [Suspect]
     Active Substance: DIGOXIN
     Dosage: 62.5 UG, QD, ROUTE: UNKNOWN
     Route: 065
  101. DIGOXIN [Suspect]
     Active Substance: DIGOXIN
     Dosage: 50 MG, QD, DOSE FORM: UNKNOWN
  102. DIGOXIN [Suspect]
     Active Substance: DIGOXIN
     Dosage: 62 UG, QD
  103. DIGOXIN [Suspect]
     Active Substance: DIGOXIN
     Dosage: 62.5 UG, QD ONCE DAILY (MORNING), ROUTE: UNKNOWN
     Route: 065
  104. DIGOXIN [Suspect]
     Active Substance: DIGOXIN
     Dosage: 62 UG, QD, ROUTE: UNKNOWN
     Route: 065
  105. DIGOXIN [Suspect]
     Active Substance: DIGOXIN
     Dosage: 62.5 G, QD, DOSE FORM: UNKNOWN
  106. DIGOXIN [Suspect]
     Active Substance: DIGOXIN
     Dosage: 63 DF, QD, DOSE FORM: UNKNOWN, ROUTE: UNKNOWN
     Route: 065
  107. DIGOXIN [Suspect]
     Active Substance: DIGOXIN
     Dosage: 62.5 UG, QD ONCE DAILY (MORNING), ROUTE: UNKNOWN
     Route: 065
  108. DIGOXIN [Suspect]
     Active Substance: DIGOXIN
     Dosage: 62.5 UG, QD, ROUTE: UNKNOWN
     Route: 065
  109. DIGOXIN [Suspect]
     Active Substance: DIGOXIN
     Route: 065
  110. DIGOXIN [Suspect]
     Active Substance: DIGOXIN
     Dosage: 62.5 UG, QD ONCE DAILY (MORNING), ROUTE: UNKNOWN
     Route: 065
  111. DIGOXIN [Suspect]
     Active Substance: DIGOXIN
     Dosage: 62 G, QD, ROUTE: UNKNOWN
     Route: 065
  112. DIGOXIN [Suspect]
     Active Substance: DIGOXIN
     Dosage: 1 UG DAILY
  113. DIGOXIN [Suspect]
     Active Substance: DIGOXIN
     Route: 065
  114. IMDUR [Suspect]
     Active Substance: ISOSORBIDE MONONITRATE
     Indication: Coronary artery disease
  115. IMDUR [Suspect]
     Active Substance: ISOSORBIDE MONONITRATE
  116. IMDUR [Suspect]
     Active Substance: ISOSORBIDE MONONITRATE
  117. IMDUR [Suspect]
     Active Substance: ISOSORBIDE MONONITRATE
  118. IMDUR [Suspect]
     Active Substance: ISOSORBIDE MONONITRATE
  119. IMDUR [Suspect]
     Active Substance: ISOSORBIDE MONONITRATE
     Dosage: 50 MILLIGRAM, QD
  120. IMDUR [Suspect]
     Active Substance: ISOSORBIDE MONONITRATE
     Dosage: 50 MG, QD ONCE DAILY (MORNING), ORAL USE
  121. IMDUR [Suspect]
     Active Substance: ISOSORBIDE MONONITRATE
     Dosage: 50 MILLIGRAM, ONCE A DAY
  122. IMDUR [Suspect]
     Active Substance: ISOSORBIDE MONONITRATE
  123. IMDUR [Suspect]
     Active Substance: ISOSORBIDE MONONITRATE
  124. IMDUR [Suspect]
     Active Substance: ISOSORBIDE MONONITRATE
  125. IMDUR [Suspect]
     Active Substance: ISOSORBIDE MONONITRATE
  126. IMDUR [Suspect]
     Active Substance: ISOSORBIDE MONONITRATE
  127. IMDUR [Suspect]
     Active Substance: ISOSORBIDE MONONITRATE
  128. IMDUR [Suspect]
     Active Substance: ISOSORBIDE MONONITRATE
  129. IMDUR [Suspect]
     Active Substance: ISOSORBIDE MONONITRATE
  130. IMDUR [Suspect]
     Active Substance: ISOSORBIDE MONONITRATE
  131. IMDUR [Suspect]
     Active Substance: ISOSORBIDE MONONITRATE
  132. IMDUR [Suspect]
     Active Substance: ISOSORBIDE MONONITRATE
  133. IMDUR [Suspect]
     Active Substance: ISOSORBIDE MONONITRATE
  134. IMDUR [Suspect]
     Active Substance: ISOSORBIDE MONONITRATE
  135. IMDUR [Suspect]
     Active Substance: ISOSORBIDE MONONITRATE
  136. IMDUR [Suspect]
     Active Substance: ISOSORBIDE MONONITRATE
  137. IMDUR [Suspect]
     Active Substance: ISOSORBIDE MONONITRATE
  138. IMDUR [Suspect]
     Active Substance: ISOSORBIDE MONONITRATE
  139. IMDUR [Suspect]
     Active Substance: ISOSORBIDE MONONITRATE
  140. IMDUR [Suspect]
     Active Substance: ISOSORBIDE MONONITRATE
     Route: 065
  141. IMDUR [Suspect]
     Active Substance: ISOSORBIDE MONONITRATE
  142. IMDUR [Suspect]
     Active Substance: ISOSORBIDE MONONITRATE
     Route: 065
  143. LANSOPRAZOLE [Suspect]
     Active Substance: LANSOPRAZOLE
     Indication: Atrial fibrillation
     Route: 065
  144. LANSOPRAZOLE [Suspect]
     Active Substance: LANSOPRAZOLE
     Route: 065
  145. LANSOPRAZOLE [Suspect]
     Active Substance: LANSOPRAZOLE
     Dosage: 10 MG DAILY
     Route: 065
  146. LANSOPRAZOLE [Suspect]
     Active Substance: LANSOPRAZOLE
     Route: 065
  147. LANSOPRAZOLE [Suspect]
     Active Substance: LANSOPRAZOLE
     Dosage: 30 MG, QD MORNING, CAPSULE, ROUTE: UNKNOWN
     Route: 065
  148. LANSOPRAZOLE [Suspect]
     Active Substance: LANSOPRAZOLE
     Dosage: 10 MG, QD, ROUTE: UNKNOWN
     Route: 065
  149. LANSOPRAZOLE [Suspect]
     Active Substance: LANSOPRAZOLE
     Dosage: 10 MG, QD, ROUTE: UNKNOWN
     Route: 065
  150. LANSOPRAZOLE [Suspect]
     Active Substance: LANSOPRAZOLE
     Dosage: 10 MG, QD, ROUTE: UNKNOWN
     Route: 065
  151. LANSOPRAZOLE [Suspect]
     Active Substance: LANSOPRAZOLE
     Dosage: 30 MG, QD, ROUTE: UNKNOWN
     Route: 065
  152. LANSOPRAZOLE [Suspect]
     Active Substance: LANSOPRAZOLE
     Dosage: 10 MG, QD, ROUTE: UNKNOWN
     Route: 065
  153. LANSOPRAZOLE [Suspect]
     Active Substance: LANSOPRAZOLE
     Dosage: 10 MG, QD, ROUTE: UNKNOWN
     Route: 065
  154. LANSOPRAZOLE [Suspect]
     Active Substance: LANSOPRAZOLE
     Dosage: 10 MG, QD, ROUTE: UNKNOWN
     Route: 065
  155. LANSOPRAZOLE [Suspect]
     Active Substance: LANSOPRAZOLE
     Dosage: 5 MG, QD, ROUTE: UNKNOWN
     Route: 065
  156. LANSOPRAZOLE [Suspect]
     Active Substance: LANSOPRAZOLE
     Dosage: 30 MG, QD
     Route: 065
  157. LANSOPRAZOLE [Suspect]
     Active Substance: LANSOPRAZOLE
     Dosage: 10 MG, QD, ROUTE: UNKNOWN
     Route: 065
  158. ISOSORBIDE DINITRATE [Suspect]
     Active Substance: ISOSORBIDE DINITRATE
     Indication: Product used for unknown indication
     Route: 065
  159. ISOSORBIDE DINITRATE [Suspect]
     Active Substance: ISOSORBIDE DINITRATE
     Dosage: 50 MG, QD ONCE A DAY, (MORNING)ORAL USE, DOSE FORM: UNKNOWN
  160. ISOSORBIDE DINITRATE [Suspect]
     Active Substance: ISOSORBIDE DINITRATE
     Route: 065
  161. ISOSORBIDE DINITRATE [Suspect]
     Active Substance: ISOSORBIDE DINITRATE
     Route: 065
  162. ISOSORBIDE DINITRATE [Suspect]
     Active Substance: ISOSORBIDE DINITRATE
     Dosage: 50 MG, QD (MORNING), DOSE FORM: UNKNOWN
  163. ISOSORBIDE DINITRATE [Suspect]
     Active Substance: ISOSORBIDE DINITRATE
     Route: 065
  164. ISOSORBIDE DINITRATE [Suspect]
     Active Substance: ISOSORBIDE DINITRATE
     Route: 065
  165. ISOSORBIDE DINITRATE [Suspect]
     Active Substance: ISOSORBIDE DINITRATE
     Route: 065
  166. ISOSORBIDE DINITRATE [Suspect]
     Active Substance: ISOSORBIDE DINITRATE
     Dosage: 50 MG, QD ONCE A DAY, (MORNING), DOSE FORM: UNKNOWN
  167. ISOSORBIDE DINITRATE [Suspect]
     Active Substance: ISOSORBIDE DINITRATE
  168. ISOSORBIDE DINITRATE [Suspect]
     Active Substance: ISOSORBIDE DINITRATE
     Route: 065
  169. ISOSORBIDE DINITRATE [Suspect]
     Active Substance: ISOSORBIDE DINITRATE
     Dosage: 50 MG, QD, DOSE FORM: UNKNOWN
  170. ISOSORBIDE DINITRATE [Suspect]
     Active Substance: ISOSORBIDE DINITRATE
     Route: 065
  171. ISOSORBIDE DINITRATE [Suspect]
     Active Substance: ISOSORBIDE DINITRATE
     Route: 065
  172. ISOSORBIDE DINITRATE [Suspect]
     Active Substance: ISOSORBIDE DINITRATE
     Route: 065
  173. LINAGLIPTIN [Suspect]
     Active Substance: LINAGLIPTIN
     Indication: Product used for unknown indication
     Dosage: 5 MG EVERY MORNING, DOSE FORM: UNKNOWN
     Route: 065
  174. LINAGLIPTIN [Suspect]
     Active Substance: LINAGLIPTIN
     Dosage: 40 MILLIGRAM, ONCE A DAY (40 MG, QD (NIGHT))^
     Route: 065
  175. LINAGLIPTIN [Suspect]
     Active Substance: LINAGLIPTIN
     Dosage: 5 UG DAILY
     Route: 065
  176. LINAGLIPTIN [Suspect]
     Active Substance: LINAGLIPTIN
     Dosage: 5 UG DAILY
     Route: 065
  177. LINAGLIPTIN [Suspect]
     Active Substance: LINAGLIPTIN
     Dosage: 5 UG DAILY
     Route: 065
  178. LINAGLIPTIN [Suspect]
     Active Substance: LINAGLIPTIN
     Dosage: 5 MG EVERY MORNING
     Route: 065
  179. LINAGLIPTIN [Suspect]
     Active Substance: LINAGLIPTIN
     Dosage: 5 MILLIGRAM, ONCE A DAY (MORNING)
     Route: 065
  180. APIXABAN [Suspect]
     Active Substance: APIXABAN
     Indication: Atrial fibrillation
     Route: 065
  181. APIXABAN [Suspect]
     Active Substance: APIXABAN
     Indication: Product used for unknown indication
     Route: 065
  182. APIXABAN [Suspect]
     Active Substance: APIXABAN
     Indication: Cerebrovascular accident prophylaxis
     Dosage: 5 MG, QD (5 MILLIGRAM, ONCE A DAY;OLU: OFF LABEL DOSING FREQUENCY), DOSE FORM: UNKNOWN
  183. APIXABAN [Suspect]
     Active Substance: APIXABAN
     Route: 065
  184. APIXABAN [Suspect]
     Active Substance: APIXABAN
     Dosage: 10 MG, QD, DOSE FORM: UNKNOWN
  185. APIXABAN [Suspect]
     Active Substance: APIXABAN
     Route: 065
  186. APIXABAN [Suspect]
     Active Substance: APIXABAN
     Dosage: 5 MG, QD, ROUTE: UNKNOWN
     Route: 065
  187. APIXABAN [Suspect]
     Active Substance: APIXABAN
     Route: 065
  188. APIXABAN [Suspect]
     Active Substance: APIXABAN
     Dosage: 10 MG, QD
     Route: 065
  189. APIXABAN [Suspect]
     Active Substance: APIXABAN
     Route: 065
  190. APIXABAN [Suspect]
     Active Substance: APIXABAN
     Dosage: 5 MG, QD, ORAL, DOSE FORM: UNKNOWN
  191. APIXABAN [Suspect]
     Active Substance: APIXABAN
  192. APIXABAN [Suspect]
     Active Substance: APIXABAN
     Dosage: 10 MG, QD, ROUTE: UNKNOWN
     Route: 065
  193. APIXABAN [Suspect]
     Active Substance: APIXABAN
     Route: 065
  194. APIXABAN [Suspect]
     Active Substance: APIXABAN
     Dosage: 5 MG, QD
  195. APIXABAN [Suspect]
     Active Substance: APIXABAN
     Route: 065
  196. APIXABAN [Suspect]
     Active Substance: APIXABAN
     Dosage: 5 MG, QD
     Route: 065
  197. APIXABAN [Suspect]
     Active Substance: APIXABAN
     Route: 065
  198. APIXABAN [Suspect]
     Active Substance: APIXABAN
     Dosage: 5 MG, QD (5 MILLIGRAM, QD;5 MG, QD, INTRAVENOUS USE(INTREVENOUS OTHERWISE NOT SPECIFIED)), ROUTE:...
     Route: 065
  199. APIXABAN [Suspect]
     Active Substance: APIXABAN
     Route: 065
  200. APIXABAN [Suspect]
     Active Substance: APIXABAN
     Dosage: 10 MG, QD
  201. APIXABAN [Suspect]
     Active Substance: APIXABAN
  202. APIXABAN [Suspect]
     Active Substance: APIXABAN
     Dosage: 5 MG, QD
  203. APIXABAN [Suspect]
     Active Substance: APIXABAN
     Route: 065
  204. APIXABAN [Suspect]
     Active Substance: APIXABAN
     Dosage: 10 MG, QD
  205. APIXABAN [Suspect]
     Active Substance: APIXABAN
     Route: 065
  206. APIXABAN [Suspect]
     Active Substance: APIXABAN
     Route: 065
  207. APIXABAN [Suspect]
     Active Substance: APIXABAN
     Route: 065
  208. APIXABAN [Suspect]
     Active Substance: APIXABAN
     Dosage: 5 MG, QD
  209. APIXABAN [Suspect]
     Active Substance: APIXABAN
     Route: 065
  210. APIXABAN [Suspect]
     Active Substance: APIXABAN
     Route: 065
  211. APIXABAN [Suspect]
     Active Substance: APIXABAN
     Route: 065
  212. APIXABAN [Suspect]
     Active Substance: APIXABAN
     Dosage: 10 MG, QD (10 MG (1 DAY)) ROUTE: UNKNOWN
     Route: 065
  213. APIXABAN [Suspect]
     Active Substance: APIXABAN
  214. APIXABAN [Suspect]
     Active Substance: APIXABAN
     Dosage: 10 MG, QD (DOSAGE FORM: UNSPECIFIED, OFF LABEL DOSING,INTRAVENOUS ROUTE)), ROUTE: UNKNOWN
     Route: 065
  215. APIXABAN [Suspect]
     Active Substance: APIXABAN
  216. APIXABAN [Suspect]
     Active Substance: APIXABAN
     Dosage: 10 MG, QD (10 MILLIGRAM, QD, OLU: OFF LABEL DOSING FREQUENC), ROUTE: UNKNOWN
  217. APIXABAN [Suspect]
     Active Substance: APIXABAN
     Dosage: 10 MG, QD (10 MG (1 DAY), DOSAGE FORM: UNSPECIFIED; OLU: OFF LABEL DOSING FREQUENCY)
     Route: 065
  218. APIXABAN [Suspect]
     Active Substance: APIXABAN
     Dosage: 10 MG, QD, ROUTE: UNKNOWN
     Route: 065
  219. APIXABAN [Suspect]
     Active Substance: APIXABAN
     Dosage: 5 MG, QD
  220. APIXABAN [Suspect]
     Active Substance: APIXABAN
     Dosage: 10 MG, QD (10 MG (1 DAY))
     Route: 065
  221. APIXABAN [Suspect]
     Active Substance: APIXABAN
     Dosage: 5 MG, QD (ROUTE: INTRAVENOUS OTHERWISE NOT SPECIFIED)
  222. APIXABAN [Suspect]
     Active Substance: APIXABAN
     Route: 065
  223. APIXABAN [Suspect]
     Active Substance: APIXABAN
     Dosage: 5 MG, QD
  224. BISOPROLOL [Suspect]
     Active Substance: BISOPROLOL
     Indication: Product used for unknown indication
  225. BISOPROLOL [Suspect]
     Active Substance: BISOPROLOL
     Indication: Cerebrovascular accident prophylaxis
     Dosage: 5 MG DAILY, ROUTE: UNKNOWN
  226. BISOPROLOL [Suspect]
     Active Substance: BISOPROLOL
     Route: 065
  227. BISOPROLOL [Suspect]
     Active Substance: BISOPROLOL
     Dosage: 10 MG, QD, ROUTE: UNKNOWN
     Route: 065
  228. BISOPROLOL [Suspect]
     Active Substance: BISOPROLOL
     Route: 065
  229. BISOPROLOL [Suspect]
     Active Substance: BISOPROLOL
  230. BISOPROLOL [Suspect]
     Active Substance: BISOPROLOL
     Route: 065
  231. BISOPROLOL [Suspect]
     Active Substance: BISOPROLOL
     Dosage: 5 MG, QD OFF LABEL USE, ROUTE: UNKNOWN
     Route: 065
  232. BISOPROLOL [Suspect]
     Active Substance: BISOPROLOL
  233. BISOPROLOL [Suspect]
     Active Substance: BISOPROLOL
     Route: 065
  234. BISOPROLOL [Suspect]
     Active Substance: BISOPROLOL
     Route: 065
  235. BISOPROLOL [Suspect]
     Active Substance: BISOPROLOL
     Dosage: 10 MG, QD, 10 MG (1 DAY), ROUTE: UNKNOWN
     Route: 065
  236. BISOPROLOL [Suspect]
     Active Substance: BISOPROLOL
  237. BISOPROLOL [Suspect]
     Active Substance: BISOPROLOL
     Dosage: 5 MG, QD (10 MG (1 DAY)10 MG, QD, ADDITIONAL INFO: MISUSE, ABUSE), ROUTE: UNKNOWN
     Route: 065
  238. BISOPROLOL [Suspect]
     Active Substance: BISOPROLOL
     Route: 065
  239. BISOPROLOL [Suspect]
     Active Substance: BISOPROLOL
  240. BISOPROLOL [Suspect]
     Active Substance: BISOPROLOL
  241. BISOPROLOL [Suspect]
     Active Substance: BISOPROLOL
     Dosage: 10 MG, QD, ROUTE: UNKNOWN
     Route: 065
  242. BISOPROLOL [Suspect]
     Active Substance: BISOPROLOL
  243. BISOPROLOL [Suspect]
     Active Substance: BISOPROLOL
  244. BISOPROLOL [Suspect]
     Active Substance: BISOPROLOL
     Route: 065
  245. BISOPROLOL [Suspect]
     Active Substance: BISOPROLOL
     Dosage: 10 MG, QD (1 DAY);OFF LABEL USE, ROUTE: UNKNOWN
     Route: 065
  246. BISOPROLOL [Suspect]
     Active Substance: BISOPROLOL
     Route: 065
  247. BISOPROLOL [Suspect]
     Active Substance: BISOPROLOL
     Dosage: 5 MG DAILY
     Route: 065
  248. BISOPROLOL [Suspect]
     Active Substance: BISOPROLOL
     Dosage: 10 MG, QD
     Route: 065
  249. BISOPROLOL [Suspect]
     Active Substance: BISOPROLOL
     Route: 065
  250. BISOPROLOL [Suspect]
     Active Substance: BISOPROLOL
     Dosage: 10 MG, QD; 10MG/ML, DOSE FORM: UNKNOWN
  251. BISOPROLOL [Suspect]
     Active Substance: BISOPROLOL
     Dosage: 5 MG DAILY
  252. BISOPROLOL [Suspect]
     Active Substance: BISOPROLOL
     Dosage: 10 MG, QD, 10 MG (1 DAY), ROUTE: UNKNOWN
  253. BISOPROLOL [Suspect]
     Active Substance: BISOPROLOL
     Dosage: 5 MG, QD; OFF LABEL USE
     Route: 065
  254. BISOPROLOL [Suspect]
     Active Substance: BISOPROLOL
     Dosage: 5 MG, QD
     Route: 065
  255. BISOPROLOL [Suspect]
     Active Substance: BISOPROLOL
     Route: 065
  256. BISOPROLOL [Suspect]
     Active Substance: BISOPROLOL
     Dosage: 5 MG, QD, ROUTE: UNKNOWN
     Route: 065
  257. BISOPROLOL [Suspect]
     Active Substance: BISOPROLOL
     Dosage: 5 MG DAILY
     Route: 065
  258. BISOPROLOL [Suspect]
     Active Substance: BISOPROLOL
     Dosage: 10 MG, QD
  259. BISOPROLOL [Suspect]
     Active Substance: BISOPROLOL
     Dosage: 5 MG, QD, , ADDITIONAL INFO: MISUSE, ABUSE
  260. BISOPROLOL [Suspect]
     Active Substance: BISOPROLOL
  261. BISOPROLOL [Suspect]
     Active Substance: BISOPROLOL
     Dosage: 10 MG, QD, 10 MG (1 DAY), OFF LABEL USE, ROUTE: UNKNOWN
     Route: 065
  262. BISOPROLOL [Suspect]
     Active Substance: BISOPROLOL
     Route: 065
  263. BISOPROLOL [Suspect]
     Active Substance: BISOPROLOL
     Dosage: 5 MG, QD
  264. BISOPROLOL [Suspect]
     Active Substance: BISOPROLOL
  265. BISOPROLOL [Suspect]
     Active Substance: BISOPROLOL
     Dosage: 10 MG, QD,10 MG (1 DAY), OFF LABEL USE
  266. BISOPROLOL [Suspect]
     Active Substance: BISOPROLOL
  267. BISOPROLOL [Suspect]
     Active Substance: BISOPROLOL
     Dosage: 5 MG, QD
  268. BISOPROLOL [Suspect]
     Active Substance: BISOPROLOL
     Dosage: 5 MG, QD, ROUTE: UNKNOWN
     Route: 065
  269. BISOPROLOL [Suspect]
     Active Substance: BISOPROLOL
     Dosage: 5 MG, QD; OFF LABEL USE, ROUTE: UNKNOWN
     Route: 065
  270. ZOCOR [Suspect]
     Active Substance: SIMVASTATIN
     Indication: Product used for unknown indication
     Route: 065
  271. ZOCOR [Suspect]
     Active Substance: SIMVASTATIN
     Dosage: 40 MG AT NIGHT
     Route: 065
  272. ZOCOR [Suspect]
     Active Substance: SIMVASTATIN
     Dosage: 40 MG AT NIGHT
     Route: 065
  273. ZOCOR [Suspect]
     Active Substance: SIMVASTATIN
     Route: 065
  274. ZOCOR [Suspect]
     Active Substance: SIMVASTATIN
     Route: 065
  275. ZOCOR [Suspect]
     Active Substance: SIMVASTATIN
     Dosage: 40 MG AT NIGHT
     Route: 065
  276. ZOCOR [Suspect]
     Active Substance: SIMVASTATIN
     Dosage: 40 MG AT NIGHT
     Route: 065
  277. HYDROCHLOROTHIAZIDE [Suspect]
     Active Substance: HYDROCHLOROTHIAZIDE
     Indication: Cerebrovascular accident prophylaxis
  278. HYDROCHLOROTHIAZIDE [Suspect]
     Active Substance: HYDROCHLOROTHIAZIDE
  279. HYDROCHLOROTHIAZIDE [Suspect]
     Active Substance: HYDROCHLOROTHIAZIDE
  280. HYDROCHLOROTHIAZIDE [Suspect]
     Active Substance: HYDROCHLOROTHIAZIDE
     Dosage: 2 MG, QD (MORNING)
  281. HYDROCHLOROTHIAZIDE [Suspect]
     Active Substance: HYDROCHLOROTHIAZIDE
  282. HYDROCHLOROTHIAZIDE [Suspect]
     Active Substance: HYDROCHLOROTHIAZIDE
     Dosage: 2 MG, QD
  283. HYDROCHLOROTHIAZIDE [Suspect]
     Active Substance: HYDROCHLOROTHIAZIDE
     Dosage: 2 MG, QD (MORNING)
  284. HYDROCHLOROTHIAZIDE [Suspect]
     Active Substance: HYDROCHLOROTHIAZIDE
     Dosage: 10 MG, QD
  285. HYDROCHLOROTHIAZIDE [Suspect]
     Active Substance: HYDROCHLOROTHIAZIDE
     Dosage: 1 DF, QD DOSAGE FORM, ONCE A DAY (MORNING)
  286. HYDROCHLOROTHIAZIDE [Suspect]
     Active Substance: HYDROCHLOROTHIAZIDE
     Dosage: 2 MG, QD 1 DF (MORNING)(OFF LABEL USE)
  287. HYDROCHLOROTHIAZIDE [Suspect]
     Active Substance: HYDROCHLOROTHIAZIDE
     Dosage: 1 DF, QD
  288. HYDROCHLOROTHIAZIDE [Suspect]
     Active Substance: HYDROCHLOROTHIAZIDE
     Dosage: 2 MG, QD
  289. HYDROCHLOROTHIAZIDE [Suspect]
     Active Substance: HYDROCHLOROTHIAZIDE
     Route: 065
  290. FELODIPINE [Suspect]
     Active Substance: FELODIPINE
     Indication: Blood pressure measurement
     Route: 065
  291. ISOSORBIDE MONONITRATE [Suspect]
     Active Substance: ISOSORBIDE MONONITRATE
     Indication: Coronary artery disease
     Dosage: 50 MG, QD ONCE A DAY(MORNING), ORAL USE
  292. ISOSORBIDE MONONITRATE [Suspect]
     Active Substance: ISOSORBIDE MONONITRATE
     Indication: Product used for unknown indication
     Dosage: 50 MG, QD
  293. ISOSORBIDE MONONITRATE [Suspect]
     Active Substance: ISOSORBIDE MONONITRATE
     Dosage: 50 MG, QD ONCE A DAILY Y(MORNING), ORAL USE
  294. ISOSORBIDE MONONITRATE [Suspect]
     Active Substance: ISOSORBIDE MONONITRATE
     Dosage: 50 MG, QD (MORNING)
  295. ISOSORBIDE MONONITRATE [Suspect]
     Active Substance: ISOSORBIDE MONONITRATE
     Dosage: 50 MG, QD (MORNING)
  296. CETIRIZINE HYDROCHLORIDE [Suspect]
     Active Substance: CETIRIZINE HYDROCHLORIDE
     Indication: Product used for unknown indication
     Dosage: 10 MG, QD (MORNING)
  297. CETIRIZINE HYDROCHLORIDE [Suspect]
     Active Substance: CETIRIZINE HYDROCHLORIDE
     Dosage: 62.5 UG, QD
     Route: 065
  298. CETIRIZINE HYDROCHLORIDE [Suspect]
     Active Substance: CETIRIZINE HYDROCHLORIDE
     Dosage: 10 MG, QD (MORNING)
  299. CETIRIZINE HYDROCHLORIDE [Suspect]
     Active Substance: CETIRIZINE HYDROCHLORIDE
     Dosage: 10 MG, QD ONCE A DAY (MORNING), ORAL USE
  300. CETIRIZINE HYDROCHLORIDE [Suspect]
     Active Substance: CETIRIZINE HYDROCHLORIDE
     Dosage: 10 MG, QD (MORNING)
  301. CETIRIZINE HYDROCHLORIDE [Suspect]
     Active Substance: CETIRIZINE HYDROCHLORIDE
     Dosage: 10 MG, QD (MORNING) ADDITIONAL INFO: ABUSE
  302. CETIRIZINE HYDROCHLORIDE [Suspect]
     Active Substance: CETIRIZINE HYDROCHLORIDE
     Dosage: 1 DF, QD
  303. CETIRIZINE HYDROCHLORIDE [Suspect]
     Active Substance: CETIRIZINE HYDROCHLORIDE
     Dosage: 62.5 UG, QD
     Route: 065
  304. CETIRIZINE HYDROCHLORIDE [Suspect]
     Active Substance: CETIRIZINE HYDROCHLORIDE
     Dosage: 10 MG, QD
     Route: 065
  305. CETIRIZINE HYDROCHLORIDE [Suspect]
     Active Substance: CETIRIZINE HYDROCHLORIDE
     Dosage: 10 MG, QD (MORNING)
  306. CETIRIZINE HYDROCHLORIDE [Suspect]
     Active Substance: CETIRIZINE HYDROCHLORIDE
     Dosage: 1 DF, QD
  307. CETIRIZINE HYDROCHLORIDE [Suspect]
     Active Substance: CETIRIZINE HYDROCHLORIDE
     Dosage: 10 MG, QD ONCE DAILY
  308. CETIRIZINE HYDROCHLORIDE [Suspect]
     Active Substance: CETIRIZINE HYDROCHLORIDE
     Dosage: 10 MG, QD MORNING  ONCE DAILY
  309. CETIRIZINE HYDROCHLORIDE [Suspect]
     Active Substance: CETIRIZINE HYDROCHLORIDE
     Dosage: 10 MG, QD (MORNING)
  310. LINAGLIPTIN [Suspect]
     Active Substance: LINAGLIPTIN
     Indication: Product used for unknown indication
     Dosage: 5 MILLIGRAM, QD
     Route: 065
  311. LINAGLIPTIN [Suspect]
     Active Substance: LINAGLIPTIN
     Dosage: 5 MG, QD, ROUTE: UNKNOWN
     Route: 065
  312. LINAGLIPTIN [Suspect]
     Active Substance: LINAGLIPTIN
     Dosage: 5 MILLIGRAM, QD
     Route: 065
  313. LINAGLIPTIN [Suspect]
     Active Substance: LINAGLIPTIN
     Dosage: 5 MG, QD, ROUTE: UNKNOWN
     Route: 065
  314. LINAGLIPTIN [Suspect]
     Active Substance: LINAGLIPTIN
     Dosage: 5 MG, ONCE DAILY (QD) (MORNING)
     Route: 065
  315. LINAGLIPTIN [Suspect]
     Active Substance: LINAGLIPTIN
     Dosage: 5 MG, QD, ROUTE: UNKNOWN
     Route: 065
  316. LINAGLIPTIN [Suspect]
     Active Substance: LINAGLIPTIN
     Dosage: 5 MILLIGRAM, QD
     Route: 065
  317. LINAGLIPTIN [Suspect]
     Active Substance: LINAGLIPTIN
  318. LINAGLIPTIN [Suspect]
     Active Substance: LINAGLIPTIN
     Dosage: 5 MG, QD (MORNING), ROUTE: UNKNOWN
     Route: 065
  319. LINAGLIPTIN [Suspect]
     Active Substance: LINAGLIPTIN
     Dosage: 5 MG, QD, ROUTE: UNKNOWN
     Route: 065
  320. NAPROXEN [Suspect]
     Active Substance: NAPROXEN
     Indication: Product used for unknown indication
     Route: 065
  321. FOSFOMYCIN [Concomitant]
     Active Substance: FOSFOMYCIN
     Indication: Product used for unknown indication
     Route: 065
  322. BENDROFLUMETHIAZIDE [Concomitant]
     Active Substance: BENDROFLUMETHIAZIDE
     Indication: Product used for unknown indication
     Route: 065
  323. ASPIRIN [Concomitant]
     Active Substance: ASPIRIN
     Indication: Product used for unknown indication
     Route: 065
  324. ESTRIOL [Concomitant]
     Active Substance: ESTRIOL
     Indication: Product used for unknown indication
     Route: 065
  325. AMITRIPTYLINE HYDROCHLORIDE [Concomitant]
     Active Substance: AMITRIPTYLINE HYDROCHLORIDE
     Indication: Product used for unknown indication
     Route: 065
  326. BUMETANIDE [Concomitant]
     Active Substance: BUMETANIDE
     Indication: Product used for unknown indication
     Dosage: EACH MORNING
  327. OMEPRAZOLE [Concomitant]
     Active Substance: OMEPRAZOLE
     Indication: Product used for unknown indication
     Route: 065
  328. CETIRIZINE [Suspect]
     Active Substance: CETIRIZINE HYDROCHLORIDE
     Indication: Product used for unknown indication
     Dosage: 10 MILLIGRAM, ONCE A DAY (MORNING)
  329. CETIRIZINE [Suspect]
     Active Substance: CETIRIZINE HYDROCHLORIDE
     Dosage: 10 MILLIGRAM, ONCE A DAY (MORNING)
  330. CETIRIZINE [Suspect]
     Active Substance: CETIRIZINE HYDROCHLORIDE
     Dosage: 2 MILLIGRAMS, ONCE A DAY (MORNING)
     Route: 065
  331. CETIRIZINE [Suspect]
     Active Substance: CETIRIZINE HYDROCHLORIDE
     Dosage: 1 DOSAGE FORM, ONCE A DAY (MORNING)
     Route: 065
  332. CETIRIZINE [Suspect]
     Active Substance: CETIRIZINE HYDROCHLORIDE
     Dosage: 62.5 MICROGRAM, ONCE A DAY
     Route: 065
  333. CETIRIZINE [Suspect]
     Active Substance: CETIRIZINE HYDROCHLORIDE
     Dosage: 1 DOSAGE FORM, ONCE A DAY (MORNING)

REACTIONS (45)
  - Myocardial infarction [Recovered/Resolved with Sequelae]
  - Subarachnoid haemorrhage [Recovered/Resolved with Sequelae]
  - Intentional product use issue [Unknown]
  - Pruritus genital [Recovered/Resolved]
  - Rash [Recovering/Resolving]
  - Vasculitis [Not Recovered/Not Resolved]
  - Off label use [Recovered/Resolved with Sequelae]
  - Pain of skin [Recovered/Resolved]
  - Facial pain [Recovered/Resolved]
  - Palmoplantar keratoderma [Not Recovered/Not Resolved]
  - Anxiety [Not Recovered/Not Resolved]
  - Sleep terror [Recovered/Resolved]
  - Pruritus [Recovering/Resolving]
  - Eye pruritus [Recovered/Resolved]
  - Insomnia [Unknown]
  - Pericarditis [Not Recovered/Not Resolved]
  - Alopecia [Recovered/Resolved with Sequelae]
  - Diarrhoea [Recovered/Resolved]
  - Tinnitus [Not Recovered/Not Resolved]
  - Hyperhidrosis [Unknown]
  - Medication error [Unknown]
  - Product use in unapproved indication [Unknown]
  - Hallucination [Recovered/Resolved]
  - Arthralgia [Recovered/Resolved]
  - Visual impairment [Not Recovered/Not Resolved]
  - Blood glucose increased [Unknown]
  - Peripheral swelling [Recovered/Resolved]
  - Intentional product misuse [Unknown]
  - Lip swelling [Recovering/Resolving]
  - Atrial tachycardia [Not Recovered/Not Resolved]
  - Muscle twitching [Unknown]
  - Cardiospasm [Not Recovered/Not Resolved]
  - Product use issue [Unknown]
  - Back pain [Unknown]
  - Amnesia [Not Recovered/Not Resolved]
  - Blindness [Recovered/Resolved]
  - Ventricular tachycardia [Not Recovered/Not Resolved]
  - Diplopia [Not Recovered/Not Resolved]
  - Transient ischaemic attack [Recovered/Resolved]
  - Abdominal pain upper [Unknown]
  - Incorrect product administration duration [Unknown]
  - Angioedema [Recovered/Resolved]
  - COVID-19 [Recovered/Resolved with Sequelae]
  - Immunisation [Recovered/Resolved]
  - Carotid artery occlusion [Recovered/Resolved]
